FAERS Safety Report 5370681-7 (Version None)
Quarter: 2007Q2

REPORT INFORMATION
  Report Type: 
  Country: None (occurrence: None)
  Receive Date: 20070626
  Receipt Date: 20070615
  Transmission Date: 20071010
  Serious: Yes (Other)
  Sender: FDA-Public Use
  Company Number: JP-SANOFI-SYNTHELABO-A01200706370

PATIENT
  Age: 826 Month
  Sex: Male
  Weight: 53.2 kg

DRUGS (5)
  1. ADALAT [Concomitant]
     Indication: HYPERTENSION
     Route: 048
     Dates: start: 20070223
  2. SEFIROM [Concomitant]
     Indication: PNEUMONIA
     Route: 042
     Dates: start: 20070224, end: 20070227
  3. GASTER [Concomitant]
     Indication: UPPER GASTROINTESTINAL HAEMORRHAGE
     Route: 042
     Dates: start: 20070214, end: 20070313
  4. ZOLPIDEM [Suspect]
     Indication: INSOMNIA
     Route: 048
     Dates: start: 20070224, end: 20070224
  5. ZOLPIDEM [Suspect]
     Route: 065
     Dates: start: 20070225, end: 20070227

REACTIONS (3)
  - DELIRIUM [None]
  - ENURESIS [None]
  - FALL [None]
